FAERS Safety Report 13910125 (Version 2)
Quarter: 2017Q3

REPORT INFORMATION
  Report Type: Spontaneous
  Country: US (occurrence: US)
  Receive Date: 20170828
  Receipt Date: 20170913
  Transmission Date: 20171127
  Serious: Yes (Hospitalization)
  Sender: FDA-Public Use
  Company Number: US-STANDARD HOMEOPATHIC COMPANY-2025194

PATIENT
  Age: 70 Year
  Sex: Male

DRUGS (1)
  1. HYLANDS RESTFUL LEGS [Suspect]
     Active Substance: HOMEOPATHICS
     Indication: RESTLESS LEGS SYNDROME
     Route: 048
     Dates: start: 20170804, end: 20170811

REACTIONS (6)
  - Dizziness [None]
  - Heat stroke [None]
  - Renal failure [None]
  - Incoherent [None]
  - Dehydration [None]
  - Hypotension [None]

NARRATIVE: CASE EVENT DATE: 20170811
